FAERS Safety Report 9249400 (Version 5)
Quarter: 2015Q3

REPORT INFORMATION
  Report Type: Spontaneous
  Country: US (occurrence: US)
  Receive Date: 20130423
  Receipt Date: 20150702
  Transmission Date: 20151125
  Serious: Yes (Hospitalization)
  Sender: FDA-Public Use
  Company Number: US-009507513-1304USA010146

PATIENT
  Sex: Male
  Weight: 75.28 kg

DRUGS (3)
  1. NORCO [Concomitant]
     Active Substance: ACETAMINOPHEN\HYDROCODONE BITARTRATE
     Dosage: UNK
     Route: 048
     Dates: start: 2000, end: 2014
  2. PROPECIA [Suspect]
     Active Substance: FINASTERIDE
     Indication: ANDROGENETIC ALOPECIA
     Dosage: 1 MG, QD
     Route: 048
     Dates: start: 20081001, end: 20110426
  3. PROPECIA [Suspect]
     Active Substance: FINASTERIDE
     Indication: ALOPECIA

REACTIONS (18)
  - Infection [Unknown]
  - Penis injury [Unknown]
  - Upper limb fracture [Unknown]
  - Depression [Not Recovered/Not Resolved]
  - Loss of libido [Unknown]
  - Cough [Unknown]
  - Sexual dysfunction [Not Recovered/Not Resolved]
  - Penile size reduced [Unknown]
  - Drug abuse [Unknown]
  - Ejaculation disorder [Unknown]
  - Cognitive disorder [Not Recovered/Not Resolved]
  - Urinary tract infection [Unknown]
  - Erectile dysfunction [Unknown]
  - Anxiety [Not Recovered/Not Resolved]
  - Hormone level abnormal [Unknown]
  - Prostatitis [Unknown]
  - Semen volume decreased [Unknown]
  - Brain injury [Unknown]

NARRATIVE: CASE EVENT DATE: 200812
